FAERS Safety Report 5285072-7 (Version None)
Quarter: 2007Q2

REPORT INFORMATION
  Report Type: 
  Country: None (occurrence: None)
  Receive Date: 20070403
  Receipt Date: 20070330
  Transmission Date: 20071010
  Serious: No
  Sender: FDA-Public Use
  Company Number: 2006UW10830

PATIENT
  Age: 52 Year
  Sex: Female
  Weight: 109.1 kg

DRUGS (2)
  1. SEROQUEL [Suspect]
     Indication: DEPRESSION
     Route: 048
     Dates: start: 20040101
  2. MARIJUANA [Concomitant]
     Dates: start: 19770101, end: 19780101

REACTIONS (2)
  - DIABETES MELLITUS [None]
  - INJURY [None]
